FAERS Safety Report 10748583 (Version 1)
Quarter: 2015Q1

REPORT INFORMATION
  Report Type: Spontaneous
  Country: NL (occurrence: NL)
  Receive Date: 20150129
  Receipt Date: 20150129
  Transmission Date: 20150721
  Serious: Yes (Disabling)
  Sender: FDA-Public Use
  Company Number: NL-BAXTER-2015BAX003946

PATIENT
  Age: 58 Year
  Sex: Female
  Weight: 56 kg

DRUGS (4)
  1. ENDOXAN I.V., POEDER VOOR OPLOSSING VOOR INJECTIE 200, 500, 1000 MG [Suspect]
     Active Substance: CYCLOPHOSPHAMIDE
     Indication: BREAST CANCER
     Dosage: 6X WITH INTERVAL OF 3 WEEKS
     Route: 042
     Dates: start: 20131021
  2. TAXOTERE [Suspect]
     Active Substance: DOCETAXEL
     Indication: BREAST CANCER
     Dosage: 6X WITH INTERVAL OF 3 WEEKS
     Route: 042
     Dates: start: 20131021
  3. PREDNISON [Suspect]
     Active Substance: PREDNISONE
     Indication: BREAST CANCER
     Dosage: 6X WITH INTERVAL OF 3 WEEKS
     Route: 065
     Dates: start: 20131021
  4. DOXORUBICIN [Suspect]
     Active Substance: DOXORUBICIN
     Indication: BREAST CANCER
     Dosage: 6X WITH INTERVAL OF 3 WEEKS
     Route: 042
     Dates: start: 20131021

REACTIONS (1)
  - Mental impairment [Not Recovered/Not Resolved]

NARRATIVE: CASE EVENT DATE: 201310
